FAERS Safety Report 22766568 (Version 2)
Quarter: 2023Q4

REPORT INFORMATION
  Report Type: Report from Study
  Country: MX (occurrence: MX)
  Receive Date: 20230731
  Receipt Date: 20231228
  Transmission Date: 20240110
  Serious: Yes (Hospitalization, Disabling, Other)
  Sender: FDA-Public Use
  Company Number: MX-ABBVIE-4749884

PATIENT
  Sex: Female

DRUGS (5)
  1. HUMIRA [Suspect]
     Active Substance: ADALIMUMAB
     Indication: Rheumatoid arthritis
     Dosage: FORM STRENGTH: 40 MILLIGRAM
     Route: 058
     Dates: start: 20140626, end: 202206
  2. HUMIRA [Suspect]
     Active Substance: ADALIMUMAB
     Dosage: FORM STRENGTH: 40 MILLIGRAM
     Route: 058
  3. ACEMETACIN [Concomitant]
     Active Substance: ACEMETACIN
     Indication: Rheumatoid arthritis
     Dosage: 2 TABLETS?FREQUENCY TEXT: 1 AT MORNING AND 1 AT NIGHT
  4. ACEMETACIN [Concomitant]
     Active Substance: ACEMETACIN
     Indication: Rheumatoid arthritis
     Dosage: 1 TABLET
  5. VITAMIN D [Concomitant]
     Active Substance: VITAMIN D NOS
     Indication: Breast cancer

REACTIONS (10)
  - Gait inability [Not Recovered/Not Resolved]
  - Muscle spasms [Not Recovered/Not Resolved]
  - Pain in extremity [Not Recovered/Not Resolved]
  - Ankylosing spondylitis [Not Recovered/Not Resolved]
  - Burning sensation [Not Recovered/Not Resolved]
  - Hypoaesthesia [Not Recovered/Not Resolved]
  - Hypertension [Unknown]
  - Breast cancer [Recovered/Resolved]
  - Discomfort [Unknown]
  - Drug ineffective [Not Recovered/Not Resolved]

NARRATIVE: CASE EVENT DATE: 20190101
